FAERS Safety Report 8812626 (Version 1)
Quarter: 2012Q4

REPORT INFORMATION
  Report Type: 
  Country: MX (occurrence: MX)
  Receive Date: 20120927
  Receipt Date: 20120927
  Transmission Date: 20130627
  Serious: Yes (Other)
  Sender: FDA-Public Use
  Company Number: PHHY2012MX083889

PATIENT
  Sex: Male

DRUGS (3)
  1. DIOVAN [Suspect]
     Indication: HYPERTENSION
     Dosage: 1 DF, daily (160 mg)
     Dates: start: 201004
  2. DIOVAN [Suspect]
     Dosage: 1 DF, daily (80 mg)
     Dates: start: 201109
  3. METOPROLOL [Concomitant]
     Indication: HYPERTENSION
     Dosage: 1 DF, daily
     Dates: start: 201108

REACTIONS (1)
  - Arthropathy [Not Recovered/Not Resolved]
